FAERS Safety Report 25567605 (Version 2)
Quarter: 2025Q3

REPORT INFORMATION
  Report Type: Spontaneous
  Country: US (occurrence: US)
  Receive Date: 20250716
  Receipt Date: 20250716
  Transmission Date: 20251021
  Serious: Yes (Other)
  Sender: NOVO NORDISK
  Company Number: US-NOVOPROD-1271876

PATIENT
  Age: 40 Year
  Sex: Male
  Weight: 136.05 kg

DRUGS (19)
  1. OZEMPIC [Suspect]
     Active Substance: SEMAGLUTIDE
     Indication: Weight control
     Dosage: 0.5 MG, QW
     Route: 058
     Dates: start: 20230425, end: 20230728
  2. OZEMPIC [Suspect]
     Active Substance: SEMAGLUTIDE
     Indication: Weight control
     Dosage: 1 MG, QW
     Route: 058
     Dates: start: 20230803, end: 20230803
  3. NAPROXEN [Concomitant]
     Active Substance: NAPROXEN
     Indication: Pain
     Dates: start: 20230101
  4. VYVANSE [Concomitant]
     Active Substance: LISDEXAMFETAMINE DIMESYLATE
     Indication: Product used for unknown indication
     Dates: start: 20230101
  5. DEXTROAMPHETAMINE [Concomitant]
     Active Substance: DEXTROAMPHETAMINE
     Indication: Product used for unknown indication
     Dates: start: 20230101
  6. LEVOCETIRIZINE [Concomitant]
     Active Substance: LEVOCETIRIZINE
     Indication: Asthma
     Dates: start: 20230101
  7. LORAZEPAM [Concomitant]
     Active Substance: LORAZEPAM
     Indication: Product used for unknown indication
     Dates: start: 20230101
  8. DULOXETINE [Concomitant]
     Active Substance: DULOXETINE
     Indication: Product used for unknown indication
     Dates: start: 20230101
  9. LOSARTAN [Concomitant]
     Active Substance: LOSARTAN
     Indication: Hypertension
     Dates: start: 20230101
  10. TESTOSTERONE CYPIONATE [Concomitant]
     Active Substance: TESTOSTERONE CYPIONATE
     Indication: Product used for unknown indication
     Dates: start: 20230101
  11. METFORMIN [Concomitant]
     Active Substance: METFORMIN HYDROCHLORIDE
     Indication: Glucose tolerance impaired
     Dates: start: 20230101
  12. MONTELUKAST [Concomitant]
     Active Substance: MONTELUKAST
     Indication: Product used for unknown indication
     Dates: start: 20230101
  13. FLUTICASONE [Concomitant]
     Active Substance: FLUTICASONE
     Indication: Product used for unknown indication
     Dates: start: 20230101
  14. BREZTRI [Concomitant]
     Active Substance: BUDESONIDE\FORMOTEROL\GLYCOPYRROLATE
     Indication: Product used for unknown indication
     Dates: start: 20230101
  15. ALBUTEROL [Concomitant]
     Active Substance: ALBUTEROL
     Indication: Product used for unknown indication
     Dates: start: 20230101
  16. BUTALBITAL AND ACETAMINOPHEN [Concomitant]
     Active Substance: ACETAMINOPHEN\BUTALBITAL
     Indication: Product used for unknown indication
     Dates: start: 20230101
  17. TRELEGY ELLIPTA [Concomitant]
     Active Substance: FLUTICASONE FUROATE\UMECLIDINIUM BROMIDE\VILANTEROL TRIFENATATE
     Indication: Product used for unknown indication
     Dates: start: 20230101
  18. VENLAFAXINE [Concomitant]
     Active Substance: VENLAFAXINE HYDROCHLORIDE
     Indication: Product used for unknown indication
     Dates: start: 20230101
  19. PHENTERMINE [Concomitant]
     Active Substance: PHENTERMINE
     Indication: Metabolic syndrome

REACTIONS (4)
  - Impaired gastric emptying [Not Recovered/Not Resolved]
  - Nausea [Not Recovered/Not Resolved]
  - Constipation [Not Recovered/Not Resolved]
  - Product use in unapproved indication [Unknown]

NARRATIVE: CASE EVENT DATE: 20230508
